FAERS Safety Report 10979794 (Version 2)
Quarter: 2015Q2

REPORT INFORMATION
  Report Type: Report from Study
  Country: US (occurrence: US)
  Receive Date: 20150402
  Receipt Date: 20150521
  Transmission Date: 20150821
  Serious: Yes (Disabling, Other)
  Sender: FDA-Public Use
  Company Number: US-ACTELION-A-NJ2015-114141

PATIENT
  Age: 25 Year
  Sex: Female
  Weight: 61.22 kg

DRUGS (10)
  1. TRAMADOL [Concomitant]
     Active Substance: TRAMADOL
  2. CLARITIN [Concomitant]
     Active Substance: LORATADINE
  3. REMODULIN [Suspect]
     Active Substance: TREPROSTINIL
     Indication: PULMONARY ARTERIAL HYPERTENSION
     Dosage: 40 NG/KG, PER MIN
     Route: 042
     Dates: start: 20120915
  4. PRILOSEC [Concomitant]
     Active Substance: OMEPRAZOLE MAGNESIUM
  5. VELETRI [Suspect]
     Active Substance: EPOPROSTENOL
     Indication: PULMONARY ARTERIAL HYPERTENSION
     Dosage: 23 NG/KG, PER MIN
     Route: 042
     Dates: start: 20120919, end: 20150310
  6. LOMOTIL [Concomitant]
     Active Substance: ATROPINE SULFATE\DIPHENOXYLATE HYDROCHLORIDE
  7. NEURONTIN [Concomitant]
     Active Substance: GABAPENTIN
     Dosage: 600 MG, TID
  8. DEPO-PROVERA [Concomitant]
     Active Substance: MEDROXYPROGESTERONE ACETATE
  9. OPSUMIT [Suspect]
     Active Substance: MACITENTAN
     Indication: PULMONARY ARTERIAL HYPERTENSION
     Dosage: 10 MG, TID
     Route: 048
     Dates: start: 20140307
  10. ADCIRCA [Concomitant]
     Active Substance: TADALAFIL

REACTIONS (9)
  - Vision blurred [Recovered/Resolved]
  - Diplopia [Unknown]
  - Hypothyroidism [Unknown]
  - Dizziness [Unknown]
  - Refraction disorder [Unknown]
  - Visual impairment [Recovered/Resolved]
  - Loss of consciousness [Unknown]
  - Dyspnoea [Unknown]
  - Headache [Unknown]

NARRATIVE: CASE EVENT DATE: 201411
